FAERS Safety Report 13475182 (Version 3)
Quarter: 2018Q1

REPORT INFORMATION
  Report Type: Report from Study
  Country: US (occurrence: US)
  Receive Date: 20170424
  Receipt Date: 20180117
  Transmission Date: 20180508
  Serious: No
  Sender: FDA-Public Use
  Company Number: US-AMGEN-USASL2017057519

PATIENT
  Age: 62 Year
  Sex: Female

DRUGS (1)
  1. REPATHA [Suspect]
     Active Substance: EVOLOCUMAB
     Indication: PRODUCT USED FOR UNKNOWN INDICATION
     Dosage: UNK, Q2MO
     Route: 065
     Dates: start: 2016

REACTIONS (7)
  - Faeces discoloured [Unknown]
  - Drug dose omission [Unknown]
  - Hepatic enzyme increased [Recovered/Resolved]
  - Abdominal pain [Unknown]
  - Nausea [Unknown]
  - Abdominal discomfort [Unknown]
  - Defaecation urgency [Not Recovered/Not Resolved]

NARRATIVE: CASE EVENT DATE: 20170419
